FAERS Safety Report 5309495-2 (Version None)
Quarter: 2007Q1

REPORT INFORMATION
  Report Type: 
  Country: None (occurrence: None)
  Receive Date: 20070201
  Receipt Date: 20061129
  Transmission Date: 20070707
  Serious: No
  Sender: FDA-Public Use
  Company Number: 258898

PATIENT
  Age: 34 Year
  Sex: Female
  Weight: 120.6 kg

DRUGS (2)
  1. LEVEMIR [Suspect]
     Indication: INSULIN-REQUIRING TYPE II DIABETES MELLITUS
     Dosage: 30 IU + SLIDING SCALE, QD, SUBCUTANEOUS
     Route: 058
     Dates: start: 20061101
  2. NOVOLOG MIX 70/30 [Concomitant]

REACTIONS (1)
  - BLOOD GLUCOSE INCREASED [None]
